APPROVED DRUG PRODUCT: MEROPENEM
Active Ingredient: MEROPENEM
Strength: 500MG/VIAL
Dosage Form/Route: INJECTABLE;INJECTION
Application: A216424 | Product #001 | TE Code: AP
Applicant: QILU PHARMACEUTICAL CO LTD
Approved: Jul 22, 2024 | RLD: No | RS: No | Type: RX